FAERS Safety Report 8228818-8 (Version None)
Quarter: 2012Q1

REPORT INFORMATION
  Report Type: 
  Country: None (occurrence: None)
  Receive Date: 20120322
  Receipt Date: 20120127
  Transmission Date: 20120608
  Serious: Yes (Hospitalization)
  Sender: FDA-Public Use
  Company Number: JP-GLAXOSMITHKLINE-B0778391A

PATIENT
  Age: 44 Year
  Sex: Female
  Weight: 67 kg

DRUGS (18)
  1. MEILAX [Concomitant]
     Route: 048
  2. AMOBAN [Concomitant]
     Route: 048
  3. NEULEPTIL [Concomitant]
     Route: 048
  4. OMEPRAZOLE [Concomitant]
     Route: 048
  5. LAMICTAL [Suspect]
     Dosage: 100MG PER DAY
     Route: 048
     Dates: start: 20111222, end: 20111223
  6. PAXIL [Concomitant]
     Route: 048
  7. GOODMIN [Concomitant]
     Route: 048
  8. LOXONIN [Concomitant]
     Route: 048
  9. ACETAMINOPHEN [Concomitant]
     Route: 048
  10. ALLEGRA [Concomitant]
     Route: 048
  11. DEPAS [Concomitant]
     Route: 048
  12. LAMICTAL [Suspect]
     Dosage: 50MG PER DAY
     Route: 048
     Dates: start: 20111207, end: 20111221
  13. OFLOXACIN [Concomitant]
     Route: 031
  14. ALPRAZOLAM [Concomitant]
     Route: 048
  15. LAMICTAL [Suspect]
     Indication: BIPOLAR DISORDER
     Dosage: 25MG PER DAY
     Route: 048
     Dates: start: 20111123, end: 20111206
  16. ABILIFY [Concomitant]
     Route: 048
     Dates: start: 20110927
  17. CHINESE MEDICINE [Concomitant]
     Route: 048
  18. ALOSENN [Concomitant]
     Route: 048

REACTIONS (12)
  - PRURITUS [None]
  - STEVENS-JOHNSON SYNDROME [None]
  - LIVER DISORDER [None]
  - KERATITIS HERPETIC [None]
  - SKIN DEGENERATIVE DISORDER [None]
  - DRY SKIN [None]
  - ERYTHEMA MULTIFORME [None]
  - ERYTHEMA [None]
  - EPIDERMAL NECROSIS [None]
  - LICHENIFICATION [None]
  - PYREXIA [None]
  - CHEILITIS [None]
